FAERS Safety Report 10209938 (Version 2)
Quarter: 2014Q2

REPORT INFORMATION
  Report Type: Spontaneous
  Country: US (occurrence: US)
  Receive Date: 20140602
  Receipt Date: 20140604
  Transmission Date: 20141212
  Serious: Yes (Death, Other)
  Sender: FDA-Public Use
  Company Number: PHHY2014US066666

PATIENT
  Age: 62 Year
  Sex: Female
  Weight: 57 kg

DRUGS (16)
  1. METHYLPHENIDATE [Suspect]
     Dosage: 10 MG, 2 DF BID
     Route: 048
  2. METHYLPHENIDATE [Suspect]
     Dosage: 20 MG
     Route: 048
  3. ACYCLOVIR [Concomitant]
     Dosage: 400 MG, UNK
  4. ATENOLOL [Concomitant]
     Dosage: 50 MG, UNK
  5. DULOXETINE [Concomitant]
     Dosage: 60 MG, UNK
  6. FUROSEMIDE [Concomitant]
     Dosage: 40 MG, UNK
  7. GABAPENTIN [Concomitant]
     Dosage: 800 MG, UNK
  8. POTASSIUM CHLORIDE [Concomitant]
     Dosage: 8 MEQ, UNK
  9. LEVALBUTEROL [Concomitant]
     Dosage: 45 UG, UNK
  10. LEVOTHYROXINE [Concomitant]
     Dosage: 0.05 MG, UNK
  11. MORPHINE [Concomitant]
     Dosage: 60 MG, UNK
  12. OXYCODONE/APAP [Concomitant]
  13. CONJUGATED ESTROGENS [Concomitant]
     Dosage: 1.25 MG, UNK
  14. PROCHLORPERAZINE [Concomitant]
     Dosage: 10 MG, UNK
  15. RANITIDINE [Concomitant]
     Dosage: 300 MG, UNK
  16. TRAZODONE [Concomitant]
     Dosage: 100 MG, UNK

REACTIONS (4)
  - Toxicity to various agents [Fatal]
  - Overdose [Fatal]
  - Unresponsive to stimuli [Unknown]
  - Malaise [Unknown]
